FAERS Safety Report 15277653 (Version 1)
Quarter: 2018Q3

REPORT INFORMATION
  Report Type: Spontaneous
  Country: ES (occurrence: ES)
  Receive Date: 20180814
  Receipt Date: 20180814
  Transmission Date: 20181010
  Serious: Yes (Other)
  Sender: FDA-Public Use
  Company Number: ES-TEVA-2018-ES-940829

PATIENT
  Age: 13 Month
  Sex: Female
  Weight: 10.12 kg

DRUGS (4)
  1. IBUPROFENO (1769A) [Concomitant]
     Active Substance: IBUPROFEN
  2. DELTIUS 10.000 UI/ML GOTAS ORALES EN SOLUCION , 1 FRASCO DE 10 ML [Concomitant]
     Dosage: 2 GTT DAILY;
     Route: 048
  3. AMOXICILINA (108A) [Suspect]
     Active Substance: AMOXICILLIN
     Indication: OTITIS MEDIA
     Route: 048
     Dates: start: 20180521, end: 20180527
  4. PARACETAMOL (12A) [Concomitant]
     Active Substance: ACETAMINOPHEN

REACTIONS (2)
  - Pruritus [Recovered/Resolved]
  - Rash maculo-papular [Recovered/Resolved]

NARRATIVE: CASE EVENT DATE: 20180523
